FAERS Safety Report 23911210 (Version 5)
Quarter: 2025Q2

REPORT INFORMATION
  Report Type: Report from Study
  Country: DE (occurrence: DE)
  Receive Date: 20240528
  Receipt Date: 20250604
  Transmission Date: 20250717
  Serious: Yes (Hospitalization)
  Sender: TAKEDA
  Company Number: DE-TAKEDA-2024TUS052334

PATIENT
  Age: 57 Year
  Sex: Male
  Weight: 78 kg

DRUGS (25)
  1. TEDUGLUTIDE [Suspect]
     Active Substance: TEDUGLUTIDE
     Indication: Short-bowel syndrome
     Dosage: 3.8 MILLIGRAM, QD
     Dates: start: 20220705, end: 20230816
  2. TEDUGLUTIDE [Suspect]
     Active Substance: TEDUGLUTIDE
     Dosage: 3.8 MILLIGRAM, 3/WEEK
     Dates: start: 20230817
  3. TEDUGLUTIDE [Suspect]
     Active Substance: TEDUGLUTIDE
  4. TEDUGLUTIDE [Suspect]
     Active Substance: TEDUGLUTIDE
  5. XIFAXAN [Concomitant]
     Active Substance: RIFAXIMIN
     Indication: Neurological symptom
     Dosage: 550 MILLIGRAM, QD
     Dates: start: 20230406
  6. VITAMIN B [Concomitant]
     Active Substance: VITAMIN B
     Indication: Vitamin B complex deficiency
     Dosage: UNK UNK, QD
     Dates: start: 20220618
  7. Granisetron puren [Concomitant]
     Indication: Nausea
  8. ACETAMINOPHEN [Concomitant]
     Active Substance: ACETAMINOPHEN
  9. PREDNICARBATE [Concomitant]
     Active Substance: PREDNICARBATE
     Dosage: 2.5 MILLIGRAM, BID
     Dates: start: 20220618
  10. ZINC OXIDE [Concomitant]
     Active Substance: ZINC OXIDE
     Indication: Prophylaxis
     Dosage: UNK UNK, BID
     Dates: start: 20220618
  11. CLOTRIMAZOLE [Concomitant]
     Active Substance: CLOTRIMAZOLE
     Dosage: UNK UNK, BID
     Dates: start: 20220618
  12. TRIMIPRAMINE [Concomitant]
     Active Substance: TRIMIPRAMINE
     Indication: Prophylaxis
  13. CHOLESTYRAMINE [Concomitant]
     Active Substance: CHOLESTYRAMINE
     Indication: Sickle cell anaemia
     Dosage: 4 GRAM, BID
     Dates: start: 20220618
  14. RAMIPRIL [Concomitant]
     Active Substance: RAMIPRIL
     Indication: Hypertension
     Dosage: 10 MILLIGRAM, QD
     Dates: start: 20220618
  15. AMLODIPINE BESYLATE [Concomitant]
     Active Substance: AMLODIPINE BESYLATE
     Indication: Hypertension
     Dosage: 5 MILLIGRAM, QD
     Dates: start: 20220618
  16. MAGNESIUM CITRATE [Concomitant]
     Active Substance: MAGNESIUM CITRATE
     Indication: Magnesium deficiency
     Dosage: 40 MILLIGRAM, TID
     Dates: start: 20220618
  17. ZINC ASPARTATE [Concomitant]
     Active Substance: ZINC ASPARTATE
     Indication: Zinc deficiency
     Dosage: 20 MILLIGRAM, QD
     Dates: start: 20220618
  18. CHOLECALCIFEROL [Concomitant]
     Active Substance: CHOLECALCIFEROL
     Indication: Vitamin D deficiency
     Dosage: 20000 INTERNATIONAL UNIT, QD
     Dates: start: 20220618
  19. OPIUM TINCTURE [Concomitant]
     Active Substance: MORPHINE
     Indication: Short-bowel syndrome
     Dosage: 30 GTT DROPS, TID
     Dates: start: 20220618
  20. ESOMEPRAZOLE [Concomitant]
     Active Substance: ESOMEPRAZOLE
     Indication: Short-bowel syndrome
     Dosage: 40 MILLIGRAM, BID
     Dates: start: 20220618
  21. TAUROLIDINE [Concomitant]
     Active Substance: TAUROLIDINE
     Indication: Short-bowel syndrome
  22. BUDESONIDE [Concomitant]
     Active Substance: BUDESONIDE
     Indication: Crohn^s disease
  23. INFLIXIMAB [Concomitant]
     Active Substance: INFLIXIMAB
     Indication: Crohn^s disease
  24. CHOLECALCIFEROL [Concomitant]
     Active Substance: CHOLECALCIFEROL
     Indication: Vitamin D deficiency
     Dosage: 20000 INTERNATIONAL UNIT, 1/WEEK
     Dates: start: 20230126
  25. MORPHINE SULFATE [Concomitant]
     Active Substance: MORPHINE SULFATE
     Indication: Pain

REACTIONS (7)
  - Device related infection [Recovered/Resolved]
  - Mucosal hypertrophy [Not Recovered/Not Resolved]
  - Fatigue [Not Recovered/Not Resolved]
  - Stoma site inflammation [Recovered/Resolved]
  - Angular cheilitis [Not Recovered/Not Resolved]
  - Vitamin C deficiency [Not Recovered/Not Resolved]
  - Gastrointestinal motility disorder [Not Recovered/Not Resolved]

NARRATIVE: CASE EVENT DATE: 20231223
